FAERS Safety Report 14776718 (Version 1)
Quarter: 2018Q2

REPORT INFORMATION
  Report Type: Report from Study
  Country: FR (occurrence: FR)
  Receive Date: 20180419
  Receipt Date: 20180419
  Transmission Date: 20180711
  Serious: Yes (Other)
  Sender: FDA-Public Use
  Company Number: FR-ACCORD-065568

PATIENT
  Age: 70 Year
  Sex: Male
  Weight: 68 kg

DRUGS (5)
  1. COLCHICINE. [Concomitant]
     Active Substance: COLCHICINE
     Indication: GOUT
     Dosage: UNK
     Route: 048
     Dates: start: 20170918, end: 20171030
  2. KARDEGIC [Concomitant]
     Active Substance: ASPIRIN DL-LYSINE
     Indication: ANTICOAGULANT THERAPY
     Dosage: UNK
     Route: 048
  3. METHOTREXATE. [Suspect]
     Active Substance: METHOTREXATE
     Indication: ANKYLOSING SPONDYLITIS
     Route: 058
     Dates: start: 20150407
  4. ALLOPURINOL. [Suspect]
     Active Substance: ALLOPURINOL
     Indication: GOUT
     Dosage: UNK
     Route: 048
     Dates: start: 20170918, end: 20171025
  5. INFLECTRA [Suspect]
     Active Substance: INFLIXIMAB-DYYB
     Indication: ANKYLOSING SPONDYLITIS
     Dosage: 340 MG, EVERY 6 WEEKS
     Route: 042
     Dates: start: 20151214, end: 20170918

REACTIONS (3)
  - Hepatic function abnormal [Recovering/Resolving]
  - Jaundice cholestatic [Recovering/Resolving]
  - Hepatocellular injury [Recovering/Resolving]

NARRATIVE: CASE EVENT DATE: 20171030
